FAERS Safety Report 4331814-4 (Version None)
Quarter: 2004Q2

REPORT INFORMATION
  Report Type: 
  Country: None (occurrence: None)
  Receive Date: 20040405
  Receipt Date: 20030919
  Transmission Date: 20050107
  Serious: No
  Sender: FDA-Public Use
  Company Number: US-GLAXOSMITHKLINE-A0427747A

PATIENT
  Sex: Female

DRUGS (4)
  1. FLOVENT [Suspect]
     Indication: ASTHMA
     Dosage: 44MCG UNKNOWN
     Route: 055
  2. RHINOCORT [Suspect]
     Indication: ASTHMA
     Route: 045
  3. HRT [Concomitant]
     Dates: end: 20030601
  4. CALCIUM [Concomitant]
     Dosage: 1600MG PER DAY

REACTIONS (1)
  - BONE DENSITY DECREASED [None]
